FAERS Safety Report 15673385 (Version 1)
Quarter: 2018Q4

REPORT INFORMATION
  Report Type: Spontaneous
  Country: US (occurrence: US)
  Receive Date: 20181129
  Receipt Date: 20181129
  Transmission Date: 20190205
  Serious: No
  Sender: FDA-Public Use
  Company Number: US-AMAG PHARMACEUTICALS, INC.-AMAG201804950

PATIENT
  Age: 80 Year
  Sex: Female

DRUGS (1)
  1. INTRAROSA [Suspect]
     Active Substance: PRASTERONE
     Indication: POSTOPERATIVE ANALGESIA
     Dosage: 6.5 MG, UNK
     Route: 067

REACTIONS (2)
  - Headache [Unknown]
  - Off label use [Unknown]
